FAERS Safety Report 9641701 (Version 2)
Quarter: 2014Q4

REPORT INFORMATION
  Report Type: Spontaneous
  Country: FR (occurrence: FR)
  Receive Date: 20131023
  Receipt Date: 20141023
  Transmission Date: 20150529
  Serious: Yes (Hospitalization)
  Sender: FDA-Public Use
  Company Number: FR-ABBVIE-13P-056-1159984-00

PATIENT
  Age: 31 Year
  Sex: Female
  Weight: 77 kg

DRUGS (2)
  1. HUMIRA [Suspect]
     Active Substance: ADALIMUMAB
     Indication: ANKYLOSING SPONDYLITIS
     Route: 058
     Dates: start: 201109, end: 20121222
  2. HUMIRA [Suspect]
     Active Substance: ADALIMUMAB
     Indication: LEUKOCYTE ANTIGEN B-27 POSITIVE

REACTIONS (12)
  - Palmar erythema [Unknown]
  - Paraesthesia [Unknown]
  - Nausea [Recovered/Resolved]
  - Hyperhidrosis [Unknown]
  - Dry eye [Unknown]
  - Vision blurred [Unknown]
  - Myalgia [Unknown]
  - Amenorrhoea [Unknown]
  - Pituitary tumour [Unknown]
  - Dry mouth [Unknown]
  - Headache [Recovered/Resolved]
  - Asthenia [Unknown]

NARRATIVE: CASE EVENT DATE: 20121219
